FAERS Safety Report 15856152 (Version 7)
Quarter: 2021Q4

REPORT INFORMATION
  Report Type: Report from Study
  Country: CA (occurrence: CA)
  Receive Date: 20190123
  Receipt Date: 20211215
  Transmission Date: 20220303
  Serious: Yes (Hospitalization)
  Sender: FDA-Public Use
  Company Number: CA-ABBVIE-19K-028-2630788-00

PATIENT
  Age: 77 Year
  Sex: Male
  Weight: 105 kg

DRUGS (28)
  1. VENETOCLAX [Suspect]
     Active Substance: VENETOCLAX
     Indication: Chronic lymphocytic leukaemia
     Route: 048
     Dates: start: 20180531, end: 20180606
  2. CEFAZOLIN [Suspect]
     Active Substance: CEFAZOLIN
     Indication: Product used for unknown indication
     Route: 065
     Dates: start: 201807
  3. ALLOPURINOL [Concomitant]
     Active Substance: ALLOPURINOL
     Indication: Product used for unknown indication
     Dates: start: 20180528, end: 20180604
  4. ALLOPURINOL [Concomitant]
     Active Substance: ALLOPURINOL
     Dates: start: 20180606, end: 20180724
  5. FUCIDIN [Concomitant]
     Active Substance: FUSIDATE SODIUM
     Indication: Product used for unknown indication
     Dosage: 2%
     Dates: start: 20180510
  6. FAMCICLOVIR [Concomitant]
     Active Substance: FAMCICLOVIR
     Indication: Rash pustular
     Dates: start: 20180611, end: 20180618
  7. SILDENAFIL [Concomitant]
     Active Substance: SILDENAFIL
     Indication: Product used for unknown indication
     Dates: start: 2018
  8. HYPROMELLOSES [Concomitant]
     Active Substance: HYPROMELLOSES
     Indication: Product used for unknown indication
     Dosage: 0.5%
     Route: 047
     Dates: start: 2018
  9. ASCORBIC ACID [Concomitant]
     Active Substance: ASCORBIC ACID
     Indication: Product used for unknown indication
     Dates: start: 2018
  10. VITAMIN D3 [Concomitant]
     Active Substance: CHOLECALCIFEROL
     Indication: Product used for unknown indication
     Dates: start: 2018
  11. ZINC [Concomitant]
     Active Substance: ZINC
     Indication: Product used for unknown indication
     Dates: start: 2018
  12. GLUCOSAMINE + CHONDROITIN [Concomitant]
     Indication: Product used for unknown indication
     Dates: start: 2018
  13. COENZYME Q10 [Concomitant]
     Active Substance: DIETARY SUPPLEMENT\UBIDECARENONE
     Indication: Product used for unknown indication
     Dates: start: 2018
  14. CURCUMIN [Concomitant]
     Active Substance: CURCUMIN
     Indication: Product used for unknown indication
     Dates: start: 2018
  15. VITAMIN B1 [Concomitant]
     Active Substance: THIAMINE HYDROCHLORIDE
     Indication: Product used for unknown indication
     Dates: start: 2018
  16. DESLORATADINE [Concomitant]
     Active Substance: DESLORATADINE
     Indication: Product used for unknown indication
     Dates: start: 2008
  17. ACETAMINOPHEN [Concomitant]
     Active Substance: ACETAMINOPHEN
     Indication: Product used for unknown indication
     Dates: start: 20180606
  18. VOLTAREN [Concomitant]
     Active Substance: DICLOFENAC SODIUM
     Indication: Product used for unknown indication
     Dosage: 1.16%
     Dates: start: 20180606
  19. DALTEPARIN [Concomitant]
     Active Substance: DALTEPARIN
     Indication: Product used for unknown indication
     Dates: start: 20180610
  20. EDOXABAN [Concomitant]
     Active Substance: EDOXABAN
     Indication: Product used for unknown indication
     Dates: start: 20180610, end: 20180724
  21. PREDNISONE [Concomitant]
     Active Substance: PREDNISONE
     Indication: Product used for unknown indication
     Dates: start: 20180622, end: 20180724
  22. CELADRIN [Concomitant]
     Active Substance: MENTHOL
     Indication: Product used for unknown indication
     Dates: start: 2018
  23. VITAMIN B COMPLEX [Concomitant]
     Active Substance: CYANOCOBALAMIN\DEXPANTHENOL\NIACINAMIDE\PYRIDOXINE HYDROCHLORIDE\RIBOFLAVIN 5^-PHOSPHATE SODIUM\THIA
     Indication: Product used for unknown indication
     Dates: start: 2018
  24. MAGNESIUM CITRATE [Concomitant]
     Active Substance: MAGNESIUM CITRATE
     Indication: Product used for unknown indication
     Dates: start: 2018
  25. DIMETHYL SULFONE [Concomitant]
     Active Substance: DIMETHYL SULFONE
     Indication: Product used for unknown indication
     Dates: start: 2018
  26. GARLIC [Concomitant]
     Active Substance: GARLIC
     Indication: Product used for unknown indication
     Dates: start: 2018
  27. SULFAMETHOXAZOLE [Concomitant]
     Active Substance: SULFAMETHOXAZOLE
     Indication: Product used for unknown indication
     Dates: start: 20180720
  28. TRIMETHOPRIM [Concomitant]
     Active Substance: TRIMETHOPRIM
     Indication: Product used for unknown indication

REACTIONS (10)
  - Embolism [Recovering/Resolving]
  - Hypervolaemia [Recovered/Resolved]
  - Hypoxia [Recovered/Resolved]
  - Rash pustular [Not Recovered/Not Resolved]
  - Drug eruption [Recovered/Resolved]
  - Skin infection [Unknown]
  - Localised oedema [Unknown]
  - Localised oedema [Recovered/Resolved]
  - Localised oedema [Recovered/Resolved]
  - Upper respiratory tract infection [Unknown]

NARRATIVE: CASE EVENT DATE: 20180531
